FAERS Safety Report 12572849 (Version 8)
Quarter: 2017Q3

REPORT INFORMATION
  Report Type: Report from Study
  Country: AU (occurrence: AU)
  Receive Date: 20160720
  Receipt Date: 20170714
  Transmission Date: 20171127
  Serious: Yes (Hospitalization)
  Sender: FDA-Public Use
  Company Number: AU-ROCHE-1702489

PATIENT
  Age: 71 Year
  Sex: Male
  Weight: 119.2 kg

DRUGS (28)
  1. AZITHROMYCIN ANHYDROUS. [Concomitant]
     Active Substance: AZITHROMYCIN ANHYDROUS
     Indication: BRONCHITIS
     Route: 048
     Dates: start: 20160611, end: 20160613
  2. AVAPRO [Concomitant]
     Active Substance: IRBESARTAN
     Indication: HYPERTENSION
     Route: 048
     Dates: end: 20160126
  3. WARFARIN [Concomitant]
     Active Substance: WARFARIN
     Route: 048
     Dates: start: 20150318, end: 20160126
  4. SALBUTAMOL [Concomitant]
     Active Substance: ALBUTEROL
     Indication: DYSPNOEA
     Route: 055
     Dates: end: 20160126
  5. METOCLOPRAMIDE. [Concomitant]
     Active Substance: METOCLOPRAMIDE
     Route: 048
     Dates: start: 20160126, end: 20160129
  6. SYMBICORT [Concomitant]
     Active Substance: BUDESONIDE\FORMOTEROL FUMARATE DIHYDRATE
     Indication: DYSPNOEA
     Dosage: DOSE UNIT: 2 PUFF
     Route: 048
  7. CLEXANE [Concomitant]
     Active Substance: ENOXAPARIN SODIUM
     Route: 065
     Dates: start: 20150317
  8. BRICANYL [Concomitant]
     Active Substance: TERBUTALINE SULFATE
     Indication: BRONCHITIS
     Route: 048
     Dates: start: 20160611, end: 20160613
  9. WARFARIN [Concomitant]
     Active Substance: WARFARIN
     Dosage: FOR SURGERY APRIL 2015
     Route: 048
     Dates: start: 20150318, end: 20160126
  10. LIGNOCAINE [Concomitant]
     Active Substance: LIDOCAINE HYDROCHLORIDE
     Indication: MUCOSAL INFLAMMATION
     Route: 061
     Dates: start: 20160301, end: 20160329
  11. SLOW-THEO [Concomitant]
     Indication: BRONCHITIS
     Route: 048
     Dates: start: 20160611, end: 20160613
  12. ROXITHROMYCIN [Concomitant]
     Active Substance: ROXITHROMYCIN
     Indication: BRONCHITIS
     Route: 048
     Dates: start: 20160627, end: 20160706
  13. COLOXYL WITH SENNA [Concomitant]
     Active Substance: DOCUSATE\SENNOSIDES
     Indication: CONSTIPATION
     Dosage: DOSE UNIT: TABLET
     Route: 048
     Dates: start: 20160129, end: 20160211
  14. RESONIUM [Concomitant]
     Active Substance: SODIUM POLYSTYRENE SULFONATE
     Indication: ACTIVATED PARTIAL THROMBOPLASTIN TIME PROLONGED
     Route: 048
     Dates: start: 20160204, end: 20160208
  15. METOPROLOL. [Concomitant]
     Active Substance: METOPROLOL
     Indication: HYPERTENSION
     Route: 048
     Dates: start: 201504
  16. HYDROCHLOROTHIAZIDE. [Concomitant]
     Active Substance: HYDROCHLOROTHIAZIDE
     Indication: HYPERTENSION
     Route: 048
     Dates: start: 20160106, end: 20160126
  17. BISOLVON CHESTY FORTE [Concomitant]
     Indication: BRONCHITIS
     Route: 048
     Dates: start: 20160611, end: 20160613
  18. CETIRIZINE [Concomitant]
     Active Substance: CETIRIZINE HYDROCHLORIDE
     Indication: BRONCHITIS
     Route: 048
     Dates: start: 20160611, end: 20160613
  19. METOCLOPRAMIDE. [Concomitant]
     Active Substance: METOCLOPRAMIDE
     Indication: NAUSEA
     Route: 048
     Dates: start: 20160111
  20. VITAMIN K [Concomitant]
     Active Substance: PHYTONADIONE
     Indication: INTERNATIONAL NORMALISED RATIO ABNORMAL
     Route: 048
     Dates: start: 20160201, end: 20160201
  21. VENTOLIN [Concomitant]
     Active Substance: ALBUTEROL SULFATE
     Indication: DYSPNOEA
  22. BEVACIZUMAB. [Suspect]
     Active Substance: BEVACIZUMAB
     Indication: RENAL CELL CARCINOMA
     Dosage: MOST RECENT DOSE PRIOR TO THE EVENT ON 05/JAN/2016 1775MG
     Route: 042
     Dates: start: 20151103
  23. ONDANSETRON [Concomitant]
     Active Substance: ONDANSETRON
     Indication: NAUSEA
     Route: 048
     Dates: start: 20160127, end: 20160129
  24. NYSTATIN. [Concomitant]
     Active Substance: NYSTATIN
     Indication: ORAL CANDIDIASIS
     Route: 048
     Dates: start: 20160301, end: 20160329
  25. FERROGRADUMET [Concomitant]
     Indication: IRON DEFICIENCY
     Route: 048
     Dates: start: 20161004
  26. ATEZOLIZUMAB. [Suspect]
     Active Substance: ATEZOLIZUMAB
     Indication: RENAL CELL CARCINOMA
     Dosage: MOST RECENT DOSE PRIOR TO THE EVENT ON 05/JAN/2016.
     Route: 042
     Dates: start: 20151103
  27. WARFARIN [Concomitant]
     Active Substance: WARFARIN
     Dosage: FOR SURGERY APRIL 2015
     Route: 048
     Dates: start: 20150318, end: 20160126
  28. BACTRIM DS [Concomitant]
     Active Substance: SULFAMETHOXAZOLE\TRIMETHOPRIM
     Indication: INFECTION PROPHYLAXIS
     Dosage: DOSE 2 TABLET
     Route: 048
     Dates: start: 20160217, end: 20160227

REACTIONS (3)
  - Hyperthyroidism [Recovered/Resolved]
  - Factor VIII inhibition [Recovered/Resolved]
  - Pulmonary embolism [Recovered/Resolved]

NARRATIVE: CASE EVENT DATE: 20151214
